FAERS Safety Report 13764327 (Version 1)
Quarter: 2017Q3

REPORT INFORMATION
  Report Type: Spontaneous
  Country: US (occurrence: CA)
  Receive Date: 20170718
  Receipt Date: 20170718
  Transmission Date: 20171127
  Serious: Yes (Other)
  Sender: FDA-Public Use
  Company Number: PHHY2017CA099592

PATIENT
  Age: 42 Year
  Sex: Female

DRUGS (3)
  1. DIHYDROERGOTAMINE [Suspect]
     Active Substance: DIHYDROERGOTAMINE
     Indication: MIGRAINE
     Dosage: UNK
     Route: 030
  2. MEPERIDINE [Suspect]
     Active Substance: MEPERIDINE
     Indication: MIGRAINE
     Dosage: UNK
     Route: 030
  3. SUMATRIPTAN. [Suspect]
     Active Substance: SUMATRIPTAN
     Indication: MIGRAINE
     Dosage: UNK
     Route: 030

REACTIONS (8)
  - Arthralgia [Unknown]
  - Muscle fibrosis [Unknown]
  - Pain in extremity [Unknown]
  - Musculoskeletal stiffness [Unknown]
  - Gait disturbance [Unknown]
  - Myalgia [Unknown]
  - Myopathy [Unknown]
  - Sleep disorder [Unknown]
